FAERS Safety Report 8592138-2 (Version None)
Quarter: 2012Q3

REPORT INFORMATION
  Report Type: 
  Country: None (occurrence: None)
  Receive Date: 20120814
  Receipt Date: 20120813
  Transmission Date: 20120928
  Serious: Yes (Death, Other)
  Sender: FDA-Public Use
  Company Number: US-BRACCO-004941

PATIENT
  Sex: Male
  Weight: 91 kg

DRUGS (24)
  1. PROHANCE [Suspect]
     Indication: ANGIOGRAM
     Dates: start: 20021016, end: 20021016
  2. ACCUPRIL [Concomitant]
  3. EPOGEN [Concomitant]
  4. MAGNEVIST [Suspect]
     Indication: NUCLEAR MAGNETIC RESONANCE IMAGING
     Route: 042
     Dates: start: 20021016, end: 20021016
  5. CONTRAST MEDIA [Suspect]
     Indication: DIABETIC FOOT
     Dates: start: 20021105, end: 20021105
  6. MAGNEVIST [Suspect]
     Dosage: ONCE
     Dates: start: 20021115, end: 20021115
  7. MAGNEVIST [Suspect]
     Dosage: ONCE
     Dates: start: 20040716, end: 20040716
  8. CONTRAST MEDIA [Suspect]
     Indication: NUCLEAR MAGNETIC RESONANCE IMAGING
     Dates: start: 20021105, end: 20021105
  9. DIATX [Concomitant]
  10. FOSRENOL [Concomitant]
  11. CLONIDINE [Concomitant]
  12. INSULIN HUMAN [Concomitant]
  13. TEMAZEPAM [Concomitant]
  14. SEVELAMER HYDROCHLORIDE [Concomitant]
  15. PROHANCE [Suspect]
     Indication: NUCLEAR MAGNETIC RESONANCE IMAGING
     Dates: start: 20021016, end: 20021016
  16. MAGNEVIST [Suspect]
     Indication: ANGIOGRAM
     Dosage: ONCE
     Dates: start: 20050125, end: 20050125
  17. CONTRAST MEDIA [Suspect]
     Dates: start: 20050114, end: 20050114
  18. CONTRAST MEDIA [Suspect]
     Indication: OSTEOMYELITIS
     Dates: start: 20021105, end: 20021105
  19. VITAMINS NOS [Concomitant]
  20. INSULIN [Concomitant]
  21. COUMADIN [Concomitant]
  22. MINOXIDIL [Concomitant]
  23. LASIX [Concomitant]
  24. CALCIUM ACETATE [Concomitant]

REACTIONS (1)
  - NEPHROGENIC SYSTEMIC FIBROSIS [None]
